FAERS Safety Report 9939163 (Version 3)
Quarter: 2014Q1

REPORT INFORMATION
  Report Type: Spontaneous
  Country: US (occurrence: US)
  Receive Date: 20140303
  Receipt Date: 20140331
  Transmission Date: 20141002
  Serious: Yes (Other)
  Sender: FDA-Public Use
  Company Number: US-ASTELLAS-2014US000854

PATIENT
  Age: 57 Year
  Sex: Male
  Weight: 93 kg

DRUGS (2)
  1. XTANDI [Suspect]
     Indication: PROSTATE CANCER METASTATIC
     Dosage: 160 MG, UID/QD
     Route: 048
     Dates: start: 201307, end: 201401
  2. GLUCOSAMINE W/CHONDROITIN SULFATE [Concomitant]
     Indication: ARTHRITIS
     Dosage: UNK
     Route: 065
     Dates: start: 201308

REACTIONS (12)
  - Pyrexia [Recovered/Resolved]
  - Flank pain [Recovering/Resolving]
  - Bronchitis [Recovered/Resolved]
  - Malignant neoplasm progression [Not Recovered/Not Resolved]
  - Alopecia [Unknown]
  - Back pain [Recovering/Resolving]
  - Chromaturia [Recovered/Resolved]
  - Weight decreased [Unknown]
  - Arthralgia [Recovering/Resolving]
  - Arthralgia [Recovering/Resolving]
  - Asthenia [Unknown]
  - Fatigue [Unknown]
